FAERS Safety Report 13395799 (Version 1)
Quarter: 2017Q2

REPORT INFORMATION
  Report Type: Spontaneous
  Country: US (occurrence: US)
  Receive Date: 20170401
  Receipt Date: 20170401
  Transmission Date: 20170830
  Serious: No
  Sender: FDA-Public Use
  Company Number: None

PATIENT
  Sex: Female

DRUGS (6)
  1. SYNTHROID [Concomitant]
     Active Substance: LEVOTHYROXINE SODIUM
  2. DOXYCYCLINE. [Concomitant]
     Active Substance: DOXYCYCLINE
  3. ADCIRCA [Concomitant]
     Active Substance: TADALAFIL
  4. LETAIRIS [Suspect]
     Active Substance: AMBRISENTAN
  5. ZYLET [Concomitant]
     Active Substance: LOTEPREDNOL ETABONATE\TOBRAMYCIN
  6. KETOTIFEN [Concomitant]
     Active Substance: KETOTIFEN

REACTIONS (3)
  - Cough [None]
  - Pulmonary congestion [None]
  - Drug interaction [None]
